FAERS Safety Report 4674067-X (Version None)
Quarter: 2005Q2

REPORT INFORMATION
  Report Type: 
  Country: None (occurrence: None)
  Receive Date: 20050525
  Receipt Date: 20050513
  Transmission Date: 20051028
  Serious: Yes (Hospitalization, Other)
  Sender: FDA-Public Use
  Company Number: KII-2005-0016637

PATIENT
  Age: 37 Year
  Sex: Male

DRUGS (6)
  1. OXYCONTIN [Suspect]
     Dosage: ORAL
     Route: 048
  2. SSRI [Suspect]
     Dosage: ORAL
     Route: 048
  3. AMPHETAMINE SULFATE TAB [Suspect]
     Dosage: ORAL
     Route: 048
  4. MUSCLE RELAXANTS [Suspect]
     Dosage: ORAL
     Route: 048
  5. SYNTHROID [Suspect]
     Dosage: ORAL
     Route: 048
  6. PESTICIDE [Suspect]
     Dosage: ORAL
     Route: 048

REACTIONS (10)
  - CONFUSIONAL STATE [None]
  - HYPERHIDROSIS [None]
  - HYPERTENSION [None]
  - MULTIPLE DRUG OVERDOSE [None]
  - NEGATIVISM [None]
  - POLYSUBSTANCE ABUSE [None]
  - SELF-MEDICATION [None]
  - SOMNOLENCE [None]
  - TACHYCARDIA [None]
  - THYROXINE FREE DECREASED [None]
